FAERS Safety Report 10677219 (Version 3)
Quarter: 2015Q1

REPORT INFORMATION
  Report Type: Report from Study
  Country: JP (occurrence: JP)
  Receive Date: 20141226
  Receipt Date: 20150205
  Transmission Date: 20150720
  Serious: Yes (Other)
  Sender: FDA-Public Use
  Company Number: JP-009507513-1412JPN010078

PATIENT
  Age: 60 Year
  Sex: Male

DRUGS (1)
  1. TEMOZOLOMIDE. [Suspect]
     Active Substance: TEMOZOLOMIDE
     Dosage: DAILY DOSAGE UNKNOWN
     Route: 041
     Dates: end: 201412

REACTIONS (1)
  - Cerebral infarction [Unknown]
